FAERS Safety Report 7486162-0 (Version None)
Quarter: 2011Q2

REPORT INFORMATION
  Report Type: 
  Country: None (occurrence: None)
  Receive Date: 20110517
  Receipt Date: 20110406
  Transmission Date: 20111010
  Serious: Yes (Hospitalization, Other)
  Sender: FDA-Public Use
  Company Number: US-BAYER-201027106NA

PATIENT
  Age: 30 Year
  Sex: Female
  Weight: 42.63 kg

DRUGS (10)
  1. YASMIN [Suspect]
     Indication: POLYCYSTIC OVARIES
     Dosage: UNK
     Route: 048
     Dates: start: 20081101, end: 20090301
  2. YAZ [Suspect]
     Indication: ACNE
  3. YAZ [Suspect]
     Indication: MENSTRUATION IRREGULAR
  4. YAZ [Suspect]
     Indication: HIRSUTISM
  5. YAZ [Suspect]
     Indication: POLYCYSTIC OVARIES
     Dosage: UNK
     Dates: start: 20090426, end: 20090909
  6. VITAMIN D [COLECALCIFEROL] [Concomitant]
  7. YASMIN [Suspect]
     Indication: MENSTRUATION IRREGULAR
  8. YASMIN [Suspect]
     Indication: ACNE
  9. YASMIN [Suspect]
     Indication: HIRSUTISM
  10. PREVACID [Concomitant]

REACTIONS (6)
  - GALLBLADDER INJURY [None]
  - NAUSEA [None]
  - BILIARY DYSKINESIA [None]
  - ABDOMINAL PAIN [None]
  - VOMITING [None]
  - DEHYDRATION [None]
